FAERS Safety Report 7737738-4 (Version None)
Quarter: 2011Q3

REPORT INFORMATION
  Report Type: 
  Country: None (occurrence: None)
  Receive Date: 20110908
  Receipt Date: 20110902
  Transmission Date: 20111222
  Serious: Yes (Hospitalization, Other)
  Sender: FDA-Public Use
  Company Number: PR-PFIZER INC-2009268496

PATIENT
  Sex: Female

DRUGS (2)
  1. ZOLOFT [Suspect]
     Indication: DEPRESSION
     Dosage: UNK
  2. SYNTHROID [Suspect]
     Dosage: UNK

REACTIONS (4)
  - ARRHYTHMIA [None]
  - SUICIDE ATTEMPT [None]
  - HYPERTHYROIDISM [None]
  - INTENTIONAL OVERDOSE [None]
